FAERS Safety Report 18429815 (Version 1)
Quarter: 2020Q4

REPORT INFORMATION
  Report Type: Spontaneous
  Country: FR (occurrence: FR)
  Receive Date: 20201026
  Receipt Date: 20201026
  Transmission Date: 20210114
  Serious: Yes (Death)
  Sender: FDA-Public Use
  Company Number: FR-ANIPHARMA-2020-FR-000271

PATIENT
  Age: 70 Year
  Sex: Female
  Weight: 80 kg

DRUGS (4)
  1. SERTRALINE [Suspect]
     Active Substance: SERTRALINE HYDROCHLORIDE
     Indication: PRODUCT USED FOR UNKNOWN INDICATION
  2. ACEBUTOLOL HYDROCHLORIDE (NON-SPECIFIC) [Suspect]
     Active Substance: ACEBUTOLOL HYDROCHLORIDE
     Indication: CARDIAC FAILURE
  3. ALPRAZOLAM (NON-SPECIFIC) [Suspect]
     Active Substance: ALPRAZOLAM
     Indication: PRODUCT USED FOR UNKNOWN INDICATION
  4. OXAZEPAM. [Suspect]
     Active Substance: OXAZEPAM
     Indication: PRODUCT USED FOR UNKNOWN INDICATION

REACTIONS (2)
  - Asphyxia [Fatal]
  - Poisoning [Fatal]
